FAERS Safety Report 4331445-6 (Version None)
Quarter: 2004Q1

REPORT INFORMATION
  Report Type: 
  Country: None (occurrence: None)
  Receive Date: 20040329
  Receipt Date: 20021231
  Transmission Date: 20041129
  Serious: Yes (Death, Other)
  Sender: FDA-Public Use
  Company Number: KII-2002-0008183

PATIENT
  Age: 31 Year
  Sex: Male

DRUGS (4)
  1. OXYCONTIN [Suspect]
     Indication: DRUG USE FOR UNKNOWN INDICATION
  2. HYDROCODONE BITARTRATE [Suspect]
     Indication: DRUG USE FOR UNKNOWN INDICATION
  3. CODEINE (CODEINE) [Suspect]
     Indication: DRUG USE FOR UNKNOWN INDICATION
  4. DARVOCET [Suspect]
     Indication: DRUG USE FOR UNKNOWN INDICATION

REACTIONS (3)
  - DRUG ABUSER [None]
  - OVERDOSE [None]
  - POLYSUBSTANCE ABUSE [None]
